FAERS Safety Report 8873994 (Version 1)
Quarter: 2012Q4

REPORT INFORMATION
  Report Type: 
  Country: US (occurrence: US)
  Receive Date: 20121030
  Receipt Date: 20121030
  Transmission Date: 20130627
  Serious: Yes (Death)
  Sender: FDA-Public Use
  Company Number: CHPA2012US022337

PATIENT
  Age: 94 Year
  Sex: Female

DRUGS (1)
  1. MYOFLEX ANALGESIC CREME [Suspect]
     Indication: ARTHRITIS
     Dosage: UNK, as needed
     Route: 061
     Dates: start: 2003, end: 201104

REACTIONS (1)
  - Death [Fatal]
